FAERS Safety Report 9704250 (Version 1)
Quarter: 2013Q4

REPORT INFORMATION
  Report Type: Spontaneous
  Country: US (occurrence: US)
  Receive Date: 20131122
  Receipt Date: 20131122
  Transmission Date: 20140711
  Serious: No
  Sender: FDA-Public Use
  Company Number: US-MYLANLABS-2013S1005353

PATIENT
  Age: 79 Year
  Sex: Female
  Weight: 76.2 kg

DRUGS (7)
  1. VERAPAMIL HCL EXTENDED RELEASE TABLETS, USP [Suspect]
     Indication: HEART RATE INCREASED
     Route: 048
     Dates: start: 1995, end: 20130225
  2. VERAPAMIL HCL EXTENDED RELEASE TABLETS, USP [Suspect]
     Indication: OFF LABEL USE
     Route: 048
     Dates: start: 1995, end: 20130225
  3. AMLODIPINE BESYLATE TABLETS [Suspect]
     Indication: BLOOD PRESSURE INCREASED
     Route: 048
     Dates: start: 2011, end: 20130225
  4. COZAAR [Concomitant]
     Route: 048
  5. SINGULAIR [Concomitant]
     Route: 048
  6. TAPAZOLE [Concomitant]
     Route: 048
  7. DYAZIDE [Concomitant]

REACTIONS (1)
  - Paraesthesia oral [Recovered/Resolved]
